FAERS Safety Report 25774811 (Version 1)
Quarter: 2025Q3

REPORT INFORMATION
  Report Type: Spontaneous
  Country: CA (occurrence: CA)
  Receive Date: 20250908
  Receipt Date: 20250908
  Transmission Date: 20251021
  Serious: Yes (Hospitalization, Other)
  Sender: MYLAN
  Company Number: CA-MYLANLABS-2025M1076138

PATIENT
  Sex: Male

DRUGS (20)
  1. AMLODIPINE BESYLATE [Suspect]
     Active Substance: AMLODIPINE BESYLATE
     Indication: Product used for unknown indication
  2. AMLODIPINE BESYLATE [Suspect]
     Active Substance: AMLODIPINE BESYLATE
     Route: 065
  3. AMLODIPINE BESYLATE [Suspect]
     Active Substance: AMLODIPINE BESYLATE
     Route: 065
  4. AMLODIPINE BESYLATE [Suspect]
     Active Substance: AMLODIPINE BESYLATE
  5. CANDESARTAN [Suspect]
     Active Substance: CANDESARTAN
     Indication: Product used for unknown indication
  6. CANDESARTAN [Suspect]
     Active Substance: CANDESARTAN
     Route: 048
  7. CANDESARTAN [Suspect]
     Active Substance: CANDESARTAN
     Route: 048
  8. CANDESARTAN [Suspect]
     Active Substance: CANDESARTAN
  9. HUMIRA [Concomitant]
     Active Substance: ADALIMUMAB
  10. HUMIRA [Concomitant]
     Active Substance: ADALIMUMAB
     Route: 065
  11. HUMIRA [Concomitant]
     Active Substance: ADALIMUMAB
     Route: 065
  12. HUMIRA [Concomitant]
     Active Substance: ADALIMUMAB
  13. SIMPONI [Concomitant]
     Active Substance: GOLIMUMAB
  14. SIMPONI [Concomitant]
     Active Substance: GOLIMUMAB
     Route: 065
  15. SIMPONI [Concomitant]
     Active Substance: GOLIMUMAB
     Route: 065
  16. SIMPONI [Concomitant]
     Active Substance: GOLIMUMAB
  17. SULFASALAZINE [Concomitant]
     Active Substance: SULFASALAZINE
  18. SULFASALAZINE [Concomitant]
     Active Substance: SULFASALAZINE
     Route: 065
  19. SULFASALAZINE [Concomitant]
     Active Substance: SULFASALAZINE
     Route: 065
  20. SULFASALAZINE [Concomitant]
     Active Substance: SULFASALAZINE

REACTIONS (8)
  - Erythema [Unknown]
  - Lymph gland infection [Unknown]
  - Pain in extremity [Unknown]
  - Urinary retention [Unknown]
  - Wound [Unknown]
  - Wound secretion [Unknown]
  - Post procedural complication [Unknown]
  - Arthralgia [Unknown]
